FAERS Safety Report 25285466 (Version 1)
Quarter: 2025Q2

REPORT INFORMATION
  Report Type: Spontaneous
  Country: US (occurrence: US)
  Receive Date: 20250509
  Receipt Date: 20250509
  Transmission Date: 20250716
  Serious: Yes (Hospitalization)
  Sender: NOVITIUM PHARMA
  Company Number: US-NOVITIUMPHARMA-2025USNVP01097

PATIENT
  Age: 49 Year
  Sex: Female

DRUGS (4)
  1. PREDNISONE [Suspect]
     Active Substance: PREDNISONE
     Indication: Granulomatosis with polyangiitis
  2. METHOTREXATE [Concomitant]
     Active Substance: METHOTREXATE
     Indication: Granulomatosis with polyangiitis
  3. RITUXIMAB [Concomitant]
     Active Substance: RITUXIMAB
     Indication: Granulomatosis with polyangiitis
  4. LEUCOVORIN [Concomitant]
     Active Substance: LEUCOVORIN\LEUCOVORIN CALCIUM

REACTIONS (4)
  - Ureaplasma infection [Recovering/Resolving]
  - Urinary tract infection [Recovering/Resolving]
  - Mycoplasma infection [Recovering/Resolving]
  - Hyperammonaemia [Recovering/Resolving]
